FAERS Safety Report 19068887 (Version 1)
Quarter: 2021Q1

REPORT INFORMATION
  Report Type: Spontaneous
  Country: US (occurrence: US)
  Receive Date: 20210329
  Receipt Date: 20210329
  Transmission Date: 20210420
  Serious: Yes (Other)
  Sender: FDA-Public Use
  Company Number: US-BRACCO-2021US01167

PATIENT
  Age: 42 Year
  Sex: Male

DRUGS (4)
  1. LUMASON [Suspect]
     Active Substance: SULFUR HEXAFLUORIDE
     Indication: STRESS ECHOCARDIOGRAM
     Dosage: 2 ML
     Dates: start: 20210323, end: 20210323
  2. LUMASON [Suspect]
     Active Substance: SULFUR HEXAFLUORIDE
     Indication: STRESS ECHOCARDIOGRAM
     Dosage: 2 ML
     Dates: start: 20210323, end: 20210323
  3. LUMASON [Suspect]
     Active Substance: SULFUR HEXAFLUORIDE
     Indication: STRESS ECHOCARDIOGRAM
     Dosage: 2 ML
     Dates: start: 20210323, end: 20210323
  4. NORMAL SALINE [Concomitant]
     Active Substance: SODIUM CHLORIDE
     Indication: ECHOCARDIOGRAM
     Dosage: UNK
     Dates: start: 20210323, end: 20210323

REACTIONS (8)
  - Headache [Not Recovered/Not Resolved]
  - Agitation [Unknown]
  - Chest pain [Unknown]
  - Exophthalmos [Unknown]
  - Sinus bradycardia [Unknown]
  - Feeling abnormal [Unknown]
  - Blood pressure increased [Unknown]
  - Loss of consciousness [Recovered/Resolved]

NARRATIVE: CASE EVENT DATE: 20210323
